FAERS Safety Report 21580290 (Version 5)
Quarter: 2023Q2

REPORT INFORMATION
  Report Type: Report from Study
  Country: US (occurrence: US)
  Receive Date: 20221110
  Receipt Date: 20230411
  Transmission Date: 20230721
  Serious: Yes (Hospitalization, Other)
  Sender: FDA-Public Use
  Company Number: US-ABBVIE-4190022

PATIENT
  Sex: Female

DRUGS (2)
  1. IMBRUVICA [Suspect]
     Active Substance: IBRUTINIB
     Indication: Chronic lymphocytic leukaemia
     Route: 048
     Dates: start: 20221018, end: 20230221
  2. IMBRUVICA [Suspect]
     Active Substance: IBRUTINIB
     Indication: Chronic lymphocytic leukaemia
     Route: 048
     Dates: start: 20230225

REACTIONS (13)
  - Stoma closure [Recovering/Resolving]
  - Stress [Unknown]
  - Red blood cell count increased [Unknown]
  - Feeling cold [Unknown]
  - Musculoskeletal stiffness [Unknown]
  - White blood cell count increased [Unknown]
  - Stoma site pain [Unknown]
  - Stoma site ulcer [Unknown]
  - Arthritis [Unknown]
  - Depression [Unknown]
  - Skin burning sensation [Unknown]
  - Device leakage [Unknown]
  - Gait disturbance [Unknown]
